FAERS Safety Report 7769691-1 (Version None)
Quarter: 2011Q3

REPORT INFORMATION
  Report Type: 
  Country: None (occurrence: None)
  Receive Date: 20110922
  Receipt Date: 20110418
  Transmission Date: 20111222
  Serious: Yes (Other)
  Sender: FDA-Public Use
  Company Number: US-ASTRAZENECA-2006UW26084

PATIENT
  Age: 51 Year
  Sex: Female
  Weight: 90.3 kg

DRUGS (15)
  1. SEROQUEL [Suspect]
     Indication: GENERALISED ANXIETY DISORDER
     Route: 048
     Dates: start: 20040101, end: 20060101
  2. SEROQUEL [Suspect]
     Route: 048
     Dates: start: 20050201, end: 20060201
  3. TOPAMAX [Concomitant]
     Indication: CONVULSION
  4. DILANTIN [Concomitant]
     Indication: LOSS OF CONSCIOUSNESS
     Dates: start: 19950516
  5. SEROQUEL [Suspect]
     Route: 048
     Dates: start: 20041115
  6. ZOCOR [Concomitant]
     Indication: BLOOD CHOLESTEROL INCREASED
     Dates: start: 20040112
  7. DILANTIN [Concomitant]
     Indication: STRESS
     Dates: start: 19950516
  8. SEROQUEL [Suspect]
     Indication: DEPRESSION
     Route: 048
     Dates: start: 20040101, end: 20060101
  9. SEROQUEL [Suspect]
     Route: 048
     Dates: start: 20041115
  10. DILANTIN [Concomitant]
     Indication: CONVULSION
     Dates: start: 19950516
  11. SEROQUEL [Suspect]
     Indication: SLEEP DISORDER
     Route: 048
     Dates: start: 20040101, end: 20060101
  12. SEROQUEL [Suspect]
     Route: 048
     Dates: start: 20041115
  13. SEROQUEL [Suspect]
     Route: 048
     Dates: start: 20050201, end: 20060201
  14. KLONOPIN [Concomitant]
     Indication: GENERALISED ANXIETY DISORDER
     Dosage: 1 MG DISPENSED, 1 MG QID
     Dates: start: 20001209
  15. SEROQUEL [Suspect]
     Route: 048
     Dates: start: 20050201, end: 20060201

REACTIONS (11)
  - GLUCOSE TOLERANCE IMPAIRED [None]
  - KETOACIDOSIS [None]
  - OBESITY [None]
  - HYPERLIPIDAEMIA [None]
  - POLYURIA [None]
  - NOCTURIA [None]
  - BLOOD CHOLESTEROL INCREASED [None]
  - PANCREATITIS [None]
  - BACK PAIN [None]
  - BACK INJURY [None]
  - TYPE 2 DIABETES MELLITUS [None]
